FAERS Safety Report 21073079 (Version 1)
Quarter: 2022Q3

REPORT INFORMATION
  Report Type: Spontaneous
  Country: US (occurrence: US)
  Receive Date: 20220712
  Receipt Date: 20220712
  Transmission Date: 20221026
  Serious: No
  Sender: FDA-Public Use
  Company Number: US-SA-2022SA270072

PATIENT
  Age: 62 Year
  Sex: Male

DRUGS (2)
  1. DUPIXENT [Suspect]
     Active Substance: DUPILUMAB
     Indication: Dermatitis atopic
     Dosage: UNK UNK, QOW
     Route: 058
     Dates: start: 201907
  2. EVEROLIMUS [Concomitant]
     Active Substance: EVEROLIMUS
     Dosage: UNK

REACTIONS (2)
  - Chills [Unknown]
  - Surgery [Unknown]

NARRATIVE: CASE EVENT DATE: 20220101
